FAERS Safety Report 20417525 (Version 1)
Quarter: 2022Q1

REPORT INFORMATION
  Report Type: Spontaneous
  Country: None (occurrence: US)
  Receive Date: 20220202
  Receipt Date: 20220202
  Transmission Date: 20220423
  Serious: No
  Sender: FDA-Public Use
  Company Number: US-Graviti Pharmaceuticals Private Limited-2124536

PATIENT
  Age: 72 Year
  Sex: Female

DRUGS (3)
  1. ATORVASTATIN CALCIUM [Suspect]
     Active Substance: ATORVASTATIN CALCIUM
     Indication: Blood cholesterol increased
     Route: 048
     Dates: start: 20211019, end: 20211217
  2. IRBESARTAN [Concomitant]
     Active Substance: IRBESARTAN
     Route: 065
  3. Atenlol [Concomitant]
     Route: 065

REACTIONS (2)
  - Tinnitus [Not Recovered/Not Resolved]
  - Therapy change [Unknown]

NARRATIVE: CASE EVENT DATE: 20211019
